FAERS Safety Report 12810910 (Version 1)
Quarter: 2016Q4

REPORT INFORMATION
  Report Type: Spontaneous
  Country: US (occurrence: US)
  Receive Date: 20161004
  Receipt Date: 20161004
  Transmission Date: 20170207
  Serious: Yes (Other)
  Sender: FDA-Public Use
  Company Number: None

PATIENT
  Age: 62 Year
  Sex: Female
  Weight: 60.75 kg

DRUGS (7)
  1. IMMUNE GLOBLIN [Suspect]
     Active Substance: HUMAN IMMUNOGLOBULIN G
     Dates: start: 20160923
  2. RITUXAN [Concomitant]
     Active Substance: RITUXIMAB
  3. PREDISONE [Concomitant]
     Active Substance: PREDNISONE
  4. ZANTAC [Concomitant]
     Active Substance: RANITIDINE HYDROCHLORIDE
  5. CLARITIN [Concomitant]
     Active Substance: LORATADINE
  6. ESTRADOIL [Concomitant]
  7. BENADRYL [Concomitant]
     Active Substance: DIPHENHYDRAMINE HYDROCHLORIDE

REACTIONS (5)
  - Feeling abnormal [None]
  - Pruritus [None]
  - Pain [None]
  - Paraesthesia oral [None]
  - Infusion related reaction [None]

NARRATIVE: CASE EVENT DATE: 20160923
